FAERS Safety Report 7277575-0 (Version None)
Quarter: 2011Q1

REPORT INFORMATION
  Report Type: 
  Country: None (occurrence: None)
  Receive Date: 20110203
  Receipt Date: 20110203
  Transmission Date: 20110831
  Serious: Yes (Other)
  Sender: FDA-Public Use
  Company Number: None

PATIENT
  Age: 71 Year
  Sex: Male
  Weight: 98.8842 kg

DRUGS (1)
  1. PRADAXA [Suspect]
     Indication: ATRIAL FIBRILLATION
     Dosage: 1 TWICE DAILY PO
     Route: 048
     Dates: start: 20110119, end: 20110121

REACTIONS (5)
  - DIZZINESS [None]
  - HAEMATOCHEZIA [None]
  - HYPOTENSION [None]
  - NAUSEA [None]
  - INCREASED TENDENCY TO BRUISE [None]
